FAERS Safety Report 12676327 (Version 2)
Quarter: 2016Q4

REPORT INFORMATION
  Report Type: Spontaneous
  Country: US (occurrence: US)
  Receive Date: 20160823
  Receipt Date: 20161107
  Transmission Date: 20170207
  Serious: No
  Sender: FDA-Public Use
  Company Number: US-PFIZER INC-2016395006

PATIENT
  Age: 68 Year
  Sex: Female

DRUGS (2)
  1. SULFASALAZINE. [Suspect]
     Active Substance: SULFASALAZINE
     Indication: PERIPHERAL SWELLING
  2. SULFASALAZINE. [Suspect]
     Active Substance: SULFASALAZINE
     Indication: HAND DEFORMITY
     Dosage: UNK
     Dates: start: 2012, end: 201609

REACTIONS (3)
  - Rash [Recovered/Resolved]
  - Drug ineffective [Recovered/Resolved]
  - Drug hypersensitivity [Recovered/Resolved]
